FAERS Safety Report 5006908-0 (Version None)
Quarter: 2006Q2

REPORT INFORMATION
  Report Type: 
  Country: None (occurrence: None)
  Receive Date: 20060517
  Receipt Date: 20060508
  Transmission Date: 20061013
  Serious: Yes (Hospitalization, Other)
  Sender: FDA-Public Use
  Company Number: 2006051765

PATIENT
  Age: 39 Year
  Sex: Female

DRUGS (2)
  1. LYRICA [Suspect]
     Indication: NEURALGIA
     Dosage: 300 MG (150 MG, 2 IN 1 D), ORAL
     Route: 048
     Dates: start: 20050101
  2. MORPHINE SULFATE [Concomitant]

REACTIONS (2)
  - ILL-DEFINED DISORDER [None]
  - WEIGHT INCREASED [None]
